FAERS Safety Report 5781843-9 (Version None)
Quarter: 2008Q2

REPORT INFORMATION
  Report Type: 
  Country: None (occurrence: None)
  Receive Date: 20080623
  Receipt Date: 20080218
  Transmission Date: 20081010
  Serious: No
  Sender: FDA-Public Use
  Company Number: US-ASTRAZENECA-2008UW03287

PATIENT
  Age: 40 Year
  Sex: Female
  Weight: 70.3 kg

DRUGS (2)
  1. RHINOCORT [Suspect]
     Indication: MULTIPLE ALLERGIES
     Route: 045
  2. ASTHMANEX [Concomitant]

REACTIONS (2)
  - DEVICE BREAKAGE [None]
  - SKIN LACERATION [None]
